FAERS Safety Report 15263795 (Version 2)
Quarter: 2019Q3

REPORT INFORMATION
  Report Type: Report from Study
  Country: US (occurrence: US)
  Receive Date: 20180810
  Receipt Date: 20190716
  Transmission Date: 20191004
  Serious: Yes (Hospitalization, Other)
  Sender: FDA-Public Use
  Company Number: US-ROCHE-2167197

PATIENT
  Sex: Male
  Weight: 26.7 kg

DRUGS (9)
  1. NUTROPIN AQ [Suspect]
     Active Substance: SOMATROPIN
     Dosage: 6 INJ/WEEK
     Route: 058
     Dates: start: 20190319
  2. ALLEGRA [Concomitant]
     Active Substance: FEXOFENADINE HYDROCHLORIDE
     Dosage: PRN
     Route: 065
  3. ALBUTEROL [SALBUTAMOL] [Concomitant]
     Active Substance: ALBUTEROL
     Dosage: PRN
     Route: 065
  4. NASOCORT [Concomitant]
     Active Substance: BUDESONIDE
  5. NUTROPIN AQ [Suspect]
     Active Substance: SOMATROPIN
     Indication: HYPOPITUITARISM
     Dosage: 6 INJ/WEEK
     Route: 058
     Dates: start: 20170728
  6. NUTROPIN AQ [Suspect]
     Active Substance: SOMATROPIN
     Dosage: 6 INJ/WEEK
     Route: 058
     Dates: start: 20180216
  7. NUTROPIN AQ [Suspect]
     Active Substance: SOMATROPIN
     Dosage: 6 INJ/WEEK
     Route: 058
     Dates: start: 20171103
  8. AMOXICILINA [AMOXICILLIN] [Concomitant]
     Indication: PROPHYLAXIS
     Route: 065
  9. BUDESONIDE. [Concomitant]
     Active Substance: BUDESONIDE
     Dosage: PRN
     Route: 065

REACTIONS (5)
  - Decreased appetite [Unknown]
  - Bronchospasm [Unknown]
  - Upper respiratory tract infection [Unknown]
  - Pyrexia [Unknown]
  - Neutropenia [Unknown]
